FAERS Safety Report 5937107-3 (Version None)
Quarter: 2008Q4

REPORT INFORMATION
  Report Type: 
  Country: None (occurrence: None)
  Receive Date: 20081031
  Receipt Date: 20081021
  Transmission Date: 20090506
  Serious: Yes (Death, Hospitalization, Other)
  Sender: FDA-Public Use
  Company Number: PHHY2008CN16272

PATIENT
  Sex: Male
  Weight: 43 kg

DRUGS (2)
  1. SEBIVO [Suspect]
     Indication: HEPATITIS B
     Dosage: 600 MG, QD
     Route: 048
     Dates: start: 20070501, end: 20080101
  2. ADEFOVIR DIPIVOXIL KIT [Concomitant]
     Dosage: 10 MG, QD

REACTIONS (43)
  - ACINETOBACTER INFECTION [None]
  - ACTIVATED PARTIAL THROMBOPLASTIN TIME PROLONGED [None]
  - ALTERED STATE OF CONSCIOUSNESS [None]
  - ANOREXIA [None]
  - BLOOD CREATINE PHOSPHOKINASE INCREASED [None]
  - BLOOD CREATINE PHOSPHOKINASE MB INCREASED [None]
  - BLOOD LACTIC ACID INCREASED [None]
  - BLOOD PRESSURE FLUCTUATION [None]
  - BURKHOLDERIA CEPACIA INFECTION [None]
  - CARDIOGENIC SHOCK [None]
  - CHEST DISCOMFORT [None]
  - CHROMATURIA [None]
  - CONSTIPATION [None]
  - COUGH [None]
  - DEATH [None]
  - DISSEMINATED INTRAVASCULAR COAGULATION [None]
  - DYSPNOEA [None]
  - ECCHYMOSIS [None]
  - EPISTAXIS [None]
  - FATIGUE [None]
  - GASTRIC DISORDER [None]
  - HAEMOPTYSIS [None]
  - HEART RATE INCREASED [None]
  - HYPOKALAEMIA [None]
  - HYPOTENSION [None]
  - LACTIC ACIDOSIS [None]
  - LUNG INFECTION [None]
  - METABOLIC ACIDOSIS [None]
  - MULTI-ORGAN FAILURE [None]
  - MYOSITIS [None]
  - NAUSEA [None]
  - NEUTROPHIL COUNT INCREASED [None]
  - OCULAR ICTERUS [None]
  - OROPHARYNGEAL PAIN [None]
  - PYREXIA [None]
  - RENAL FAILURE [None]
  - RESPIRATORY FAILURE [None]
  - RESPIRATORY RATE INCREASED [None]
  - RESPIRATORY TRACT INFECTION [None]
  - RHINORRHOEA [None]
  - SHOCK [None]
  - VOMITING [None]
  - WHITE BLOOD CELL COUNT INCREASED [None]
